FAERS Safety Report 19014424 (Version 3)
Quarter: 2021Q2

REPORT INFORMATION
  Report Type: Report from Study
  Country: MX (occurrence: MX)
  Receive Date: 20210316
  Receipt Date: 20210531
  Transmission Date: 20210717
  Serious: Yes (Other)
  Sender: FDA-Public Use
  Company Number: NVSC2020MX029373

PATIENT
  Age: 68 Year
  Sex: Female
  Weight: 83 kg

DRUGS (3)
  1. GALVUS MET [Suspect]
     Active Substance: METFORMIN HYDROCHLORIDE\VILDAGLIPTIN
     Dosage: 1.5 DF (METFORMIN 500 MG, VILDAGLIPTIN 50 MG), BID
     Route: 048
     Dates: start: 20191226
  2. GALVUS MET [Suspect]
     Active Substance: METFORMIN HYDROCHLORIDE\VILDAGLIPTIN
     Dosage: UNK
     Route: 065
  3. GALVUS MET [Suspect]
     Active Substance: METFORMIN HYDROCHLORIDE\VILDAGLIPTIN
     Indication: DIABETES MELLITUS
     Dosage: 1 DF  (METFORMIN 500 MG, VILDAGLIPTIN 50 MG), BID (APPROXIMATLY 5 YEARS AGO)
     Route: 048
     Dates: start: 201511

REACTIONS (13)
  - Blood glucose abnormal [Unknown]
  - Speech disorder [Unknown]
  - Nausea [Unknown]
  - Chest pain [Recovering/Resolving]
  - Facial paralysis [Recovering/Resolving]
  - Dysphagia [Unknown]
  - Abdominal discomfort [Not Recovered/Not Resolved]
  - Sleep disorder [Unknown]
  - Contraindicated product administered [Unknown]
  - Dyspepsia [Unknown]
  - Sciatica [Recovering/Resolving]
  - Product prescribing error [Unknown]
  - Wrong technique in product usage process [Unknown]

NARRATIVE: CASE EVENT DATE: 20191226
